FAERS Safety Report 19603664 (Version 18)
Quarter: 2023Q4

REPORT INFORMATION
  Report Type: Report from Study
  Country: CN (occurrence: CN)
  Receive Date: 20210723
  Receipt Date: 20231030
  Transmission Date: 20240110
  Serious: Yes (Other)
  Sender: FDA-Public Use
  Company Number: CN-TAKEDA-2021TUS033072

PATIENT
  Age: 52 Year
  Sex: Male
  Weight: 82 kg

DRUGS (13)
  1. IXAZOMIB [Suspect]
     Active Substance: IXAZOMIB
     Indication: Plasma cell myeloma
     Dosage: 4 MILLIGRAM
     Route: 048
     Dates: start: 20210307, end: 20210326
  2. IXAZOMIB [Suspect]
     Active Substance: IXAZOMIB
     Dosage: 4 MILLIGRAM
     Route: 048
     Dates: start: 20210410
  3. FENTANYL [Concomitant]
     Active Substance: FENTANYL\FENTANYL CITRATE
     Indication: Neuropathy peripheral
     Dosage: 4.125 MILLIGRAM
     Route: 061
     Dates: start: 20210303
  4. OXYCODONE AND ACETAMINOPHEN [Concomitant]
     Active Substance: ACETAMINOPHEN\OXYCODONE HYDROCHLORIDE
     Indication: Resorption bone increased
     Dosage: 5 MILLIGRAM, QD
     Route: 048
     Dates: start: 20210303
  5. PREGABALIN [Concomitant]
     Active Substance: PREGABALIN
     Indication: Resorption bone increased
     Dosage: 75 MILLIGRAM, BID
     Route: 048
     Dates: start: 20210303
  6. PREGABALIN [Concomitant]
     Active Substance: PREGABALIN
     Indication: Analgesic therapy
  7. GLUTATHIONE [Concomitant]
     Active Substance: GLUTATHIONE
     Indication: Neuropathy peripheral
     Dosage: 0.4 GRAM, TID
     Route: 048
     Dates: start: 202012
  8. ASPIRIN [Concomitant]
     Active Substance: ASPIRIN
     Indication: Prophylaxis
     Dosage: 100 MILLIGRAM, QD
     Route: 048
     Dates: start: 20210309
  9. ASPIRIN [Concomitant]
     Active Substance: ASPIRIN
     Indication: Thrombosis prophylaxis
  10. METHYLCOBALAMIN [Concomitant]
     Active Substance: METHYLCOBALAMIN
     Indication: Neuropathy peripheral
     Dosage: 0.5 MILLIGRAM, TID
     Route: 048
     Dates: start: 20210306
  11. GRANULOCYTE COLONY-STIMULATING FACTOR NOS [Concomitant]
     Active Substance: GRANULOCYTE COLONY-STIMULATING FACTOR NOS
     Indication: White blood cell count
     Dosage: 150 MICROGRAM, QD
     Route: 058
     Dates: start: 20210303, end: 20210305
  12. LINEZOLID [Concomitant]
     Active Substance: LINEZOLID
     Indication: Soft tissue disorder
     Dosage: 0.6 GRAM
     Route: 048
     Dates: start: 20210304
  13. LINEZOLID [Concomitant]
     Active Substance: LINEZOLID
     Indication: Skin disorder

REACTIONS (11)
  - Soft tissue infection [Recovering/Resolving]
  - White blood cell count decreased [Recovering/Resolving]
  - Neutrophil count decreased [Recovered/Resolved]
  - Asthenia [Not Recovered/Not Resolved]
  - Decreased appetite [Recovering/Resolving]
  - Constipation [Recovering/Resolving]
  - Upper respiratory tract infection [Recovered/Resolved]
  - Respiratory tract infection [Recovered/Resolved]
  - Headache [Recovering/Resolving]
  - Skin infection [Recovering/Resolving]
  - Off label use [Recovered/Resolved]

NARRATIVE: CASE EVENT DATE: 20210312
